FAERS Safety Report 23783082 (Version 1)
Quarter: 2024Q2

REPORT INFORMATION
  Report Type: Spontaneous
  Country: US (occurrence: None)
  Receive Date: 20240424
  Receipt Date: 20240424
  Transmission Date: 20240716
  Serious: No
  Sender: FDA-Public Use
  Company Number: None

PATIENT
  Age: 65 Year
  Sex: Female
  Weight: 85.5 kg

DRUGS (7)
  1. ESTRACE [Suspect]
     Active Substance: ESTRADIOL
     Indication: Atrophy
     Dosage: OTHER QUANTITY : 1 1/4 PEA SIZE;?FREQUENCY : EVERY OTHER DAY;?
     Route: 061
  2. NURTEC ODT [Concomitant]
     Active Substance: RIMEGEPANT SULFATE
  3. B2/riboflavin [Concomitant]
  4. METAMUCIL [Concomitant]
     Active Substance: PLANTAGO SEED
  5. REFRESH CELLUVISC [Concomitant]
     Active Substance: CARBOXYMETHYLCELLULOSE SODIUM
  6. VITAMINS [Concomitant]
     Active Substance: VITAMINS
  7. VITAMIN D [Concomitant]
     Active Substance: VITAMIN D NOS

REACTIONS (10)
  - Migraine [None]
  - Gastrooesophageal reflux disease [None]
  - Hunger [None]
  - Weight increased [None]
  - Nail growth abnormal [None]
  - Hair growth abnormal [None]
  - Osteoarthritis [None]
  - Intervertebral disc protrusion [None]
  - Condition aggravated [None]
  - Connective tissue disorder [None]

NARRATIVE: CASE EVENT DATE: 20190301
